FAERS Safety Report 8016183-0 (Version None)
Quarter: 2011Q4

REPORT INFORMATION
  Report Type: 
  Country: None (occurrence: None)
  Receive Date: 20111230
  Receipt Date: 20111221
  Transmission Date: 20120403
  Serious: Yes (Hospitalization)
  Sender: FDA-Public Use
  Company Number: US-ACTELION-A-US2011-43636

PATIENT

DRUGS (3)
  1. REVATIO [Concomitant]
  2. TRACLEER [Suspect]
     Indication: PULMONARY ARTERIAL HYPERTENSION
     Dosage: UNK MG, UNK
     Route: 048
     Dates: start: 20071225
  3. PLAVIX [Concomitant]

REACTIONS (4)
  - VIRAL INFECTION [None]
  - PNEUMONIA [None]
  - RHINOVIRUS INFECTION [None]
  - FAILURE TO THRIVE [None]
